FAERS Safety Report 25484584 (Version 1)
Quarter: 2025Q2

REPORT INFORMATION
  Report Type: Spontaneous
  Country: US (occurrence: None)
  Receive Date: 20250626
  Receipt Date: 20250626
  Transmission Date: 20250716
  Serious: Yes (Hospitalization)
  Sender: FDA-CTU
  Company Number: None

PATIENT
  Age: 56 Year
  Sex: Female
  Weight: 82.8 kg

DRUGS (4)
  1. OHTUVAYRE [Suspect]
     Active Substance: ENSIFENTRINE
     Indication: Chronic obstructive pulmonary disease
     Dosage: FREQUENCY : TWICE A DAY;?
     Route: 055
     Dates: start: 20250619, end: 20250620
  2. ALBUTEROL SULFATE [Concomitant]
     Active Substance: ALBUTEROL SULFATE
     Dates: start: 20241223
  3. Trelegy Ellipta 200-62.5-25 mcg [Concomitant]
     Dates: start: 20250129
  4. Ipratropium-Albuterol 0.5mg-3mg [Concomitant]
     Dates: start: 20250425

REACTIONS (5)
  - Blister [None]
  - Dizziness [None]
  - Pruritus [None]
  - Throat tightness [None]
  - Presyncope [None]

NARRATIVE: CASE EVENT DATE: 20250620
